FAERS Safety Report 4308738-1 (Version None)
Quarter: 2004Q1

REPORT INFORMATION
  Report Type: 
  Country: None (occurrence: None)
  Receive Date: 20040227
  Receipt Date: 20040217
  Transmission Date: 20041129
  Serious: Yes (Death)
  Sender: FDA-Public Use
  Company Number: US-JNJFOC-20031103362

PATIENT
  Age: 39 Year
  Sex: Female
  Weight: 47.1741 kg

DRUGS (1)
  1. REMICADE [Suspect]
     Indication: ANKYLOSING SPONDYLITIS
     Dosage: 300 MG, INTRAVENOUS
     Route: 042
     Dates: start: 20030806

REACTIONS (1)
  - DEATH [None]
